FAERS Safety Report 25539797 (Version 1)
Quarter: 2025Q3

REPORT INFORMATION
  Report Type: Spontaneous
  Country: US (occurrence: None)
  Receive Date: 20250710
  Receipt Date: 20250710
  Transmission Date: 20251021
  Serious: Yes (Hospitalization)
  Sender: FDA-CTU
  Company Number: None

PATIENT
  Age: 87 Year
  Sex: Male
  Weight: 63 kg

DRUGS (3)
  1. OHTUVAYRE [Suspect]
     Active Substance: ENSIFENTRINE
     Indication: Chronic obstructive pulmonary disease
     Dosage: FREQUENCY : TWICE A DAY;?
     Route: 055
     Dates: start: 20250525, end: 20250620
  2. BREZTRI [Concomitant]
     Active Substance: BUDESONIDE\FORMOTEROL\GLYCOPYRROLATE
  3. YUPELRI [Concomitant]
     Active Substance: REVEFENACIN

REACTIONS (3)
  - Blood urine present [None]
  - Urinary tract infection [None]
  - Therapy cessation [None]

NARRATIVE: CASE EVENT DATE: 20250606
